FAERS Safety Report 24527712 (Version 2)
Quarter: 2025Q1

REPORT INFORMATION
  Report Type: Spontaneous
  Country: CN (occurrence: CN)
  Receive Date: 20241021
  Receipt Date: 20250124
  Transmission Date: 20250408
  Serious: Yes (Other)
  Sender: ROCHE
  Company Number: CN-002147023-NVSC2024CN203903

PATIENT

DRUGS (1)
  1. RANIBIZUMAB [Suspect]
     Active Substance: RANIBIZUMAB
     Indication: Macular oedema
     Dosage: 0.05ML OF RANIBIZUMAB, ONCE A MONTH,  TREATED CONTINUOUSLY FOR THREE TIMES
     Route: 050

REACTIONS (1)
  - Cataract [Unknown]
